FAERS Safety Report 7409878-0 (Version None)
Quarter: 2011Q2

REPORT INFORMATION
  Report Type: 
  Country: None (occurrence: None)
  Receive Date: 20110412
  Receipt Date: 20110221
  Transmission Date: 20111010
  Serious: Yes (Hospitalization, Other)
  Sender: FDA-Public Use
  Company Number: US-BAYER-201042083NA

PATIENT
  Age: 42 Year
  Sex: Female
  Weight: 102 kg

DRUGS (6)
  1. YAZ [Suspect]
     Indication: CONTRACEPTION
     Dosage: QW
     Route: 048
     Dates: start: 20080621, end: 20081107
  2. ANTACIDS [Concomitant]
  3. YAZ [Suspect]
     Indication: ACNE
  4. YAZ [Suspect]
     Indication: PREMENSTRUAL SYNDROME
  5. NSAID'S [Concomitant]
     Dosage: UNK
     Dates: start: 20010101, end: 20100101
  6. GAS-X [Concomitant]

REACTIONS (5)
  - CHOLECYSTECTOMY [None]
  - CHOLECYSTITIS CHRONIC [None]
  - CHOLELITHIASIS [None]
  - ABDOMINAL PAIN [None]
  - GALLBLADDER CHOLESTEROLOSIS [None]
